FAERS Safety Report 18819661 (Version 2)
Quarter: 2021Q1

REPORT INFORMATION
  Report Type: Spontaneous
  Country: US (occurrence: US)
  Receive Date: 20210202
  Receipt Date: 20210301
  Transmission Date: 20210419
  Serious: No
  Sender: FDA-Public Use
  Company Number: US-BIOVITRUM-2021US0870

PATIENT
  Sex: Female
  Weight: 54 kg

DRUGS (22)
  1. IBUPROFEN. [Concomitant]
     Active Substance: IBUPROFEN
  2. FIRDAPSE [Suspect]
     Active Substance: AMIFAMPRIDINE PHOSPHATE
     Route: 048
     Dates: start: 20200806
  3. LEVOTHYROXINE. [Concomitant]
     Active Substance: LEVOTHYROXINE
  4. METAMUCIL [Concomitant]
     Active Substance: PLANTAGO SEED
  5. KINERET [Suspect]
     Active Substance: ANAKINRA
     Indication: RHEUMATOID ARTHRITIS
  6. LANSOPRAZOLE. [Concomitant]
     Active Substance: LANSOPRAZOLE
  7. VITAMIN C [Concomitant]
     Active Substance: ASCORBIC ACID
  8. METFORMIN [Concomitant]
     Active Substance: METFORMIN HYDROCHLORIDE
  9. PREDNISONE. [Concomitant]
     Active Substance: PREDNISONE
  10. FOSAMAX [Concomitant]
     Active Substance: ALENDRONATE SODIUM
  11. GARLIC SUPPLEMENT [Concomitant]
  12. FIBER GUMMIES [Concomitant]
     Active Substance: DIETARY SUPPLEMENT
  13. CYMBALTA [Concomitant]
     Active Substance: DULOXETINE HYDROCHLORIDE
  14. CALCIUM AND MAGNESIUM [Concomitant]
     Active Substance: CALCIUM\MAGNESIUM
  15. AMITRIPTYLINE [Concomitant]
     Active Substance: AMITRIPTYLINE
  16. TYLENOL [Concomitant]
     Active Substance: ACETAMINOPHEN
  17. VITAMIN D3 [Concomitant]
     Active Substance: CHOLECALCIFEROL
  18. PROTEIN DRINK [Concomitant]
  19. FIRDAPSE [Suspect]
     Active Substance: AMIFAMPRIDINE PHOSPHATE
     Indication: MYASTHENIC SYNDROME
     Route: 048
     Dates: start: 20200804, end: 20200805
  20. CRESTOR [Suspect]
     Active Substance: ROSUVASTATIN CALCIUM
  21. CBD [Concomitant]
     Active Substance: CANNABIDIOL
  22. D COMPLEX [Concomitant]

REACTIONS (7)
  - Pain [Not Recovered/Not Resolved]
  - Diarrhoea [Not Recovered/Not Resolved]
  - Memory impairment [Not Recovered/Not Resolved]
  - Anxiety [Not Recovered/Not Resolved]
  - Dysstasia [Not Recovered/Not Resolved]
  - Asthenia [Not Recovered/Not Resolved]
  - Tremor [Not Recovered/Not Resolved]
